FAERS Safety Report 11379644 (Version 2)
Quarter: 2015Q3

REPORT INFORMATION
  Report Type: Spontaneous
  Country: US (occurrence: US)
  Receive Date: 20150814
  Receipt Date: 20150817
  Transmission Date: 20151125
  Serious: Yes (Death, Hospitalization)
  Sender: FDA-Public Use
  Company Number: US-ROCHE-ITM201505IM016049

PATIENT
  Sex: Male
  Weight: 108.96 kg

DRUGS (1)
  1. ESBRIET [Suspect]
     Active Substance: PIRFENIDONE
     Indication: IDIOPATHIC PULMONARY FIBROSIS
     Route: 048
     Dates: start: 20150323

REACTIONS (4)
  - Enteritis infectious [Recovered/Resolved]
  - Death [Fatal]
  - Gastroenteritis viral [Unknown]
  - Lung infection [Unknown]
